FAERS Safety Report 18745568 (Version 1)
Quarter: 2021Q1

REPORT INFORMATION
  Report Type: Spontaneous
  Country: US (occurrence: US)
  Receive Date: 20210114
  Receipt Date: 20210114
  Transmission Date: 20210419
  Serious: Yes (Other)
  Sender: FDA-Public Use
  Company Number: None

PATIENT
  Age: 37 Year
  Sex: Male
  Weight: 58.5 kg

DRUGS (2)
  1. AZATHIOPRINE. [Concomitant]
     Active Substance: AZATHIOPRINE
  2. MESALAMINE 1.2 GRAM [Suspect]
     Active Substance: MESALAMINE
     Route: 048

REACTIONS (3)
  - Dry mouth [None]
  - Hypersensitivity [None]
  - Product solubility abnormal [None]

NARRATIVE: CASE EVENT DATE: 20200901
